FAERS Safety Report 21215139 (Version 1)
Quarter: 2022Q3

REPORT INFORMATION
  Report Type: Spontaneous
  Country: US (occurrence: US)
  Receive Date: 20220816
  Receipt Date: 20220816
  Transmission Date: 20221027
  Serious: No
  Sender: FDA-Public Use
  Company Number: US-CIPLA LTD.-2022US00277

PATIENT
  Sex: Female

DRUGS (1)
  1. ALENDRONATE [Suspect]
     Active Substance: ALENDRONATE SODIUM
     Indication: Product used for unknown indication
     Dosage: UNK
     Route: 065

REACTIONS (7)
  - Musculoskeletal stiffness [Unknown]
  - Limb immobilisation [Unknown]
  - Arthralgia [Unknown]
  - Rash [Recovering/Resolving]
  - Diarrhoea [Unknown]
  - Bone pain [Unknown]
  - Pain in extremity [Unknown]
